FAERS Safety Report 19348305 (Version 1)
Quarter: 2021Q2

REPORT INFORMATION
  Report Type: Spontaneous
  Country: US (occurrence: US)
  Receive Date: 20210528
  Receipt Date: 20210528
  Transmission Date: 20210717
  Serious: Yes (Hospitalization)
  Sender: FDA-Public Use
  Company Number: None

PATIENT
  Age: 80 Year
  Sex: Female

DRUGS (1)
  1. KEYTRUDA [Suspect]
     Active Substance: PEMBROLIZUMAB
     Indication: LYMPHOCYTIC LYMPHOMA
     Dosage: ?          OTHER FREQUENCY:ONE TIME;?
     Route: 040
     Dates: start: 20210504, end: 20210504

REACTIONS (3)
  - Stevens-Johnson syndrome [None]
  - Thermal burn [None]
  - Toxic epidermal necrolysis [None]

NARRATIVE: CASE EVENT DATE: 20210516
